FAERS Safety Report 5349975-7 (Version None)
Quarter: 2007Q2

REPORT INFORMATION
  Report Type: 
  Country: None (occurrence: None)
  Receive Date: 20070607
  Receipt Date: 20070531
  Transmission Date: 20071010
  Serious: Yes (Other)
  Sender: FDA-Public Use
  Company Number: DK-SHR-DK-2007-015568

PATIENT
  Age: 49 Year
  Sex: Female

DRUGS (1)
  1. LEVONORGESTREL [Suspect]
     Indication: MENORRHAGIA
     Dosage: 20 A?G/DAY, CONT
     Route: 015
     Dates: start: 20070124, end: 20070328

REACTIONS (2)
  - GENITAL HAEMORRHAGE [None]
  - UTERINE LEIOMYOMA [None]
